FAERS Safety Report 11564924 (Version 1)
Quarter: 2015Q3

REPORT INFORMATION
  Report Type: Report from Study
  Country: US (occurrence: US)
  Receive Date: 20150928
  Receipt Date: 20150928
  Transmission Date: 20151125
  Serious: No
  Sender: FDA-Public Use
  Company Number: US-EXELIXIS-CABO-14004881

PATIENT
  Age: 43 Year
  Sex: Male

DRUGS (3)
  1. COMETRIQ [Suspect]
     Active Substance: CABOZANTINIB S-MALATE
     Dosage: 20 MG, QOD
     Route: 048
     Dates: start: 20141219
  2. COMETRIQ [Suspect]
     Active Substance: CABOZANTINIB S-MALATE
     Dosage: 40 MG, ALTERNATING WITH 20 MG, QOD
     Route: 048
     Dates: start: 20150318
  3. COMETRIQ [Suspect]
     Active Substance: CABOZANTINIB S-MALATE
     Indication: THYROID CANCER
     Dosage: 60 MG, QD
     Route: 048
     Dates: start: 20141006, end: 201412

REACTIONS (11)
  - Oral pain [Unknown]
  - Contusion [Unknown]
  - Feeling hot [Unknown]
  - Erythema [Unknown]
  - Asthenia [Unknown]
  - Skin exfoliation [Unknown]
  - Pain in extremity [Unknown]
  - Pain in jaw [Unknown]
  - Hair colour changes [Unknown]
  - Weight decreased [Unknown]
  - Alopecia [Unknown]

NARRATIVE: CASE EVENT DATE: 201410
